FAERS Safety Report 16174335 (Version 1)
Quarter: 2019Q2

REPORT INFORMATION
  Report Type: Spontaneous
  Country: US (occurrence: US)
  Receive Date: 20190409
  Receipt Date: 20190409
  Transmission Date: 20190711
  Serious: No
  Sender: FDA-Public Use
  Company Number: US-MYLANLABS-2019M1028329

PATIENT
  Sex: Male
  Weight: 93 kg

DRUGS (4)
  1. EDEX [Concomitant]
     Active Substance: ALPROSTADIL
     Dosage: UNK
  2. MUSE [Suspect]
     Active Substance: ALPROSTADIL
     Indication: SEXUAL DYSFUNCTION
     Dosage: UNK
     Route: 066
  3. MUSE [Suspect]
     Active Substance: ALPROSTADIL
     Indication: SEXUAL DYSFUNCTION
     Dosage: 1000 MICROGRAM, QW
     Route: 066
  4. MUSE [Suspect]
     Active Substance: ALPROSTADIL
     Dosage: 1000 UNK
     Route: 066

REACTIONS (1)
  - Drug ineffective [Not Recovered/Not Resolved]
